FAERS Safety Report 6570865-6 (Version None)
Quarter: 2010Q1

REPORT INFORMATION
  Report Type: 
  Country: None (occurrence: None)
  Receive Date: 20100204
  Receipt Date: 20100127
  Transmission Date: 20100710
  Serious: Yes (Hospitalization)
  Sender: FDA-Public Use
  Company Number: US-GILEAD-2010-0026667

PATIENT
  Sex: Female

DRUGS (14)
  1. LETAIRIS [Suspect]
     Indication: PULMONARY ARTERIAL HYPERTENSION
     Route: 048
     Dates: start: 20091201, end: 20091218
  2. COZAAR [Concomitant]
  3. COREG [Concomitant]
  4. LASIX [Concomitant]
  5. COUMADIN [Concomitant]
  6. LIPITOR [Concomitant]
  7. DILTIAZEM HCL [Concomitant]
  8. ASPIRIN [Concomitant]
  9. METOLAZONE [Concomitant]
  10. GLIPIZIDE [Concomitant]
  11. KLONOPIN [Concomitant]
  12. NOVOLIN [Concomitant]
  13. HYDROXYZINE [Concomitant]
  14. MULTI-VITAMINS [Concomitant]

REACTIONS (4)
  - ANAEMIA [None]
  - CARDIAC FAILURE CONGESTIVE [None]
  - PERICARDIAL EFFUSION [None]
  - RENAL FAILURE ACUTE [None]
